FAERS Safety Report 6713123-9 (Version None)
Quarter: 2010Q2

REPORT INFORMATION
  Report Type: 
  Country: None (occurrence: None)
  Receive Date: 20100506
  Receipt Date: 20100504
  Transmission Date: 20101027
  Serious: Yes (Other)
  Sender: FDA-Public Use
  Company Number: CA-ALLERGAN-0807053US

PATIENT
  Age: 43 Year
  Sex: Female
  Weight: 67 kg

DRUGS (1)
  1. BOTOX [Suspect]
     Indication: DRUG USE FOR UNKNOWN INDICATION
     Dosage: 150 UNITS, SINGLE
     Route: 030
     Dates: start: 20030306, end: 20030306

REACTIONS (3)
  - AMYOTROPHY [None]
  - MUSCLE DISORDER [None]
  - PAIN [None]
